FAERS Safety Report 8714613 (Version 3)
Quarter: 2012Q4

REPORT INFORMATION
  Report Type: 
  Country: AU (occurrence: AU)
  Receive Date: 20120809
  Receipt Date: 20120828
  Transmission Date: 20130627
  Serious: Yes (Other)
  Sender: FDA-Public Use
  Company Number: AU-JNJFOC-20120800577

PATIENT
  Age: 28 Year
  Sex: Female

DRUGS (9)
  1. IMURAN [Concomitant]
     Indication: CROHN^S DISEASE
     Route: 065
     Dates: start: 2008
  2. SULFASALAZINE [Concomitant]
     Indication: ARTHRALGIA
     Route: 065
     Dates: start: 201202
  3. REMICADE [Suspect]
     Indication: CROHN^S DISEASE
     Dosage: dose 3
     Route: 042
     Dates: start: 20110125, end: 20120710
  4. REMICADE [Suspect]
     Indication: CROHN^S DISEASE
     Route: 042
     Dates: start: 20120516
  5. REMICADE [Suspect]
     Indication: CROHN^S DISEASE
     Route: 042
  6. REMICADE [Suspect]
     Indication: CROHN^S DISEASE
     Route: 042
     Dates: start: 20120725
  7. HYDROCORTISONE [Concomitant]
     Indication: PREMEDICATION
     Route: 042
     Dates: start: 20120710
  8. FEXOFENADINE [Concomitant]
     Indication: PREMEDICATION
     Route: 048
     Dates: start: 20120710
  9. AZATHIOPRINE [Concomitant]
     Indication: PREMEDICATION
     Route: 048

REACTIONS (11)
  - Dyspnoea [Recovered/Resolved]
  - Chest discomfort [Recovered/Resolved]
  - Hypersensitivity [Recovered/Resolved]
  - Body temperature increased [Recovered/Resolved]
  - Infusion related reaction [Recovered/Resolved]
  - Urticaria [Recovered/Resolved]
  - Flushing [Recovered/Resolved]
  - Wheezing [Recovered/Resolved]
  - Bronchospasm [Recovered/Resolved]
  - Vomiting [Recovered/Resolved]
  - Rash [Recovered/Resolved]
